FAERS Safety Report 15701377 (Version 1)
Quarter: 2018Q4

REPORT INFORMATION
  Report Type: Spontaneous
  Country: PL (occurrence: PL)
  Receive Date: 20181207
  Receipt Date: 20181207
  Transmission Date: 20190205
  Serious: Yes (Hospitalization)
  Sender: FDA-Public Use
  Company Number: PL-TEVA-2018-PL-983252

PATIENT
  Age: 72 Year
  Sex: Male
  Weight: 78 kg

DRUGS (1)
  1. AZITHROMYCINE [Suspect]
     Active Substance: AZITHROMYCIN
     Indication: UPPER RESPIRATORY TRACT INFECTION
     Route: 048
     Dates: start: 20180205, end: 20180206

REACTIONS (1)
  - Erythema [Recovered/Resolved]

NARRATIVE: CASE EVENT DATE: 20180206
